FAERS Safety Report 7705382-0 (Version None)
Quarter: 2011Q3

REPORT INFORMATION
  Report Type: 
  Country: None (occurrence: None)
  Receive Date: 20110824
  Receipt Date: 20110819
  Transmission Date: 20111222
  Serious: Yes (Hospitalization, Other)
  Sender: FDA-Public Use
  Company Number: US-AMGEN-USASP2011028308

PATIENT
  Sex: Male

DRUGS (3)
  1. NPLATE [Suspect]
     Indication: MYELODYSPLASTIC SYNDROME
  2. NPLATE [Suspect]
     Indication: IDIOPATHIC THROMBOCYTOPENIC PURPURA
     Dosage: 180 A?G, UNK
     Dates: start: 20110304
  3. NPLATE [Suspect]

REACTIONS (2)
  - HOSPITALISATION [None]
  - DRUG INEFFECTIVE [None]
